FAERS Safety Report 16326034 (Version 1)
Quarter: 2019Q2

REPORT INFORMATION
  Report Type: Report from Study
  Country: US (occurrence: US)
  Receive Date: 20190517
  Receipt Date: 20190517
  Transmission Date: 20190711
  Serious: Yes (Other)
  Sender: FDA-Public Use
  Company Number: PHEH2019US020537

PATIENT
  Sex: Female

DRUGS (1)
  1. ENTRESTO [Suspect]
     Active Substance: SACUBITRIL\VALSARTAN
     Indication: PRODUCT USED FOR UNKNOWN INDICATION
     Dosage: UNK
     Route: 048

REACTIONS (7)
  - Mental impairment [Unknown]
  - Crying [Unknown]
  - Dyspnoea [Unknown]
  - Malaise [Unknown]
  - Hypophagia [Unknown]
  - Memory impairment [Unknown]
  - Abnormal behaviour [Unknown]
